FAERS Safety Report 23581115 (Version 2)
Quarter: 2024Q1

REPORT INFORMATION
  Report Type: Spontaneous
  Country: US (occurrence: US)
  Receive Date: 20240229
  Receipt Date: 20240326
  Transmission Date: 20240410
  Serious: Yes (Other)
  Sender: FDA-Public Use
  Company Number: US-PFIZER INC-PV202400027729

PATIENT
  Age: 86 Year
  Sex: Female

DRUGS (2)
  1. IBRANCE [Suspect]
     Active Substance: PALBOCICLIB
     Dosage: TAKE 1 TAB ONCE DAILY FOR 3 WEEKS ON AND 1 WEEK OFF
     Route: 048
  2. IBRANCE [Suspect]
     Active Substance: PALBOCICLIB
     Dosage: TAKE 1 TAB (75 MG TOTAL) BY MOUTH DAILY FOR 21 DAYS AND THEN REST FOR 7 DAYS
     Route: 048

REACTIONS (2)
  - Neutropenia [Unknown]
  - Illness [Unknown]
